FAERS Safety Report 7533460-8 (Version None)
Quarter: 2011Q2

REPORT INFORMATION
  Report Type: 
  Country: None (occurrence: None)
  Receive Date: 20110608
  Receipt Date: 20110526
  Transmission Date: 20111010
  Serious: Yes (Hospitalization)
  Sender: FDA-Public Use
  Company Number: US-MYLANLABS-2011S1011225

PATIENT
  Age: 66 Year
  Sex: Male

DRUGS (3)
  1. CISPLATIN [Suspect]
     Indication: AESTHESIONEUROBLASTOMA
     Dosage: CISPLATIN 60 MG/M2 GIVEN ON DAY 1 AND 23
     Route: 065
  2. ETOPOSIDE [Suspect]
     Indication: AESTHESIONEUROBLASTOMA
     Dosage: 120 MG/M2 GIVEN ON DAYS 1-3 AND 23-25
     Route: 065
  3. CARBOPLATIN [Suspect]
     Indication: AESTHESIONEUROBLASTOMA
     Dosage: AUC 6 GIVEN ON DAY 23
     Route: 065

REACTIONS (6)
  - PNEUMONIA [None]
  - SOFT TISSUE INFECTION [None]
  - INAPPROPRIATE ANTIDIURETIC HORMONE SECRETION [None]
  - DERMATITIS [None]
  - MUCOSAL INFLAMMATION [None]
  - NEUTROPENIC SEPSIS [None]
